FAERS Safety Report 9445183 (Version 1)
Quarter: 2013Q3

REPORT INFORMATION
  Report Type: Spontaneous
  Country: DK (occurrence: DK)
  Receive Date: 20130807
  Receipt Date: 20130807
  Transmission Date: 20140515
  Serious: Yes (Other)
  Sender: FDA-Public Use
  Company Number: DK-MPIJNJ-2013-05884

PATIENT
  Sex: 0

DRUGS (6)
  1. VELCADE [Suspect]
     Indication: PLASMA CELL MYELOMA
     Dosage: UNK
     Route: 065
     Dates: start: 20130422
  2. ARANESP [Concomitant]
     Dosage: UNK
  3. ACICLOVIR [Concomitant]
     Dosage: 400 MG, BID
  4. PANTOPRAZOL [Concomitant]
     Dosage: 40 MG, UNK
  5. NORITREN [Concomitant]
     Dosage: 25 MG, BID
  6. ACTIVELLE                          /00686201/ [Concomitant]

REACTIONS (3)
  - Eye haemorrhage [Not Recovered/Not Resolved]
  - Platelet count decreased [Unknown]
  - Vaginal haemorrhage [Unknown]
